FAERS Safety Report 5402457-6 (Version None)
Quarter: 2007Q3

REPORT INFORMATION
  Report Type: 
  Country: None (occurrence: None)
  Receive Date: 20070801
  Receipt Date: 20060607
  Transmission Date: 20080115
  Serious: No
  Sender: FDA-Public Use
  Company Number: A0608231A

PATIENT
  Sex: Female

DRUGS (5)
  1. IMITREX [Suspect]
     Indication: MIGRAINE
     Dosage: 100MG AS REQUIRED
     Route: 048
  2. IMITREX [Suspect]
     Route: 058
  3. CODEINE SUL TAB [Concomitant]
  4. ANTI-CHOLESTEROL MEDICATION [Concomitant]
  5. BIRTH CONTROL PILLS [Concomitant]

REACTIONS (5)
  - BLOOD PRESSURE INCREASED [None]
  - FLUSHING [None]
  - SENSATION OF BLOOD FLOW [None]
  - SENSATION OF PRESSURE [None]
  - THERAPEUTIC RESPONSE DELAYED [None]
